FAERS Safety Report 14925232 (Version 1)
Quarter: 2018Q2

REPORT INFORMATION
  Report Type: Spontaneous
  Country: US (occurrence: US)
  Receive Date: 20180522
  Receipt Date: 20180522
  Transmission Date: 20180711
  Serious: Yes (Other)
  Sender: FDA-Public Use
  Company Number: US-BAYER-2018-096426

PATIENT
  Age: 8 Year
  Sex: Male

DRUGS (4)
  1. CIPROFLOXACIN BETAIN [Suspect]
     Active Substance: CIPROFLOXACIN
     Route: 042
  2. PROPOFOL. [Interacting]
     Active Substance: PROPOFOL
     Route: 042
  3. MIDAZOLAM [Concomitant]
     Active Substance: MIDAZOLAM HYDROCHLORIDE
     Route: 042
  4. FENTANYL. [Interacting]
     Active Substance: FENTANYL
     Route: 042

REACTIONS (3)
  - Drug interaction [Recovered/Resolved]
  - Thrombophlebitis [Recovered/Resolved]
  - Rash erythematous [Recovered/Resolved]
